FAERS Safety Report 5816845-7 (Version None)
Quarter: 2008Q3

REPORT INFORMATION
  Report Type: 
  Country: None (occurrence: None)
  Receive Date: 20080721
  Receipt Date: 20080718
  Transmission Date: 20090109
  Serious: Yes (Hospitalization)
  Sender: FDA-Public Use
  Company Number: PHHO2004DE18219

PATIENT
  Sex: Male
  Weight: 81.9 kg

DRUGS (9)
  1. NEORAL [Suspect]
     Indication: RENAL TRANSPLANT
     Dosage: UNK
     Route: 048
     Dates: start: 20041202
  2. NEORAL [Suspect]
     Dosage: 250MG DAILY
     Dates: start: 20041214, end: 20041215
  3. NEORAL [Suspect]
     Dosage: 1000MG DAILY
     Route: 048
     Dates: start: 20041216, end: 20041220
  4. NEORAL [Suspect]
     Dosage: 950 MG/DAY
     Dates: start: 20041221, end: 20041221
  5. MYCOPHENOLATE MOFETIL [Suspect]
     Indication: RENAL TRANSPLANT
     Dosage: 2.0 G
     Dates: start: 20041202, end: 20041208
  6. MYCOPHENOLATE MOFETIL [Suspect]
     Dosage: CODE NOT BROKEN (50% DOSE)
     Route: 048
     Dates: start: 20041209, end: 20041215
  7. MYCOPHENOLATE MOFETIL [Suspect]
     Dosage: CODE NOT BROKEN (FULL DOSE)
     Route: 048
     Dates: start: 20041216, end: 20041220
  8. KEPINOL [Suspect]
     Dosage: UNK, UNK
     Route: 048
     Dates: start: 20041202, end: 20050104
  9. LASIX [Suspect]
     Route: 048
     Dates: start: 20041202, end: 20050104

REACTIONS (4)
  - BILIRUBIN CONJUGATED INCREASED [None]
  - BLOOD BILIRUBIN INCREASED [None]
  - HAEMOLYSIS [None]
  - HAPTOGLOBIN DECREASED [None]
